FAERS Safety Report 8297663-X (Version None)
Quarter: 2012Q2

REPORT INFORMATION
  Report Type: 
  Country: None (occurrence: None)
  Receive Date: 20120419
  Receipt Date: 20120406
  Transmission Date: 20120825
  Serious: Yes (Hospitalization, Other)
  Sender: FDA-Public Use
  Company Number: PHEH2011US010619

PATIENT
  Sex: Male

DRUGS (3)
  1. LAMICTAL [Concomitant]
  2. GILENYA [Suspect]
     Indication: MULTIPLE SCLEROSIS
     Dosage: 0.5 MG, QD
     Route: 048
     Dates: start: 20110512, end: 20110813
  3. CYMBALTA [Concomitant]
     Indication: PAIN

REACTIONS (33)
  - INTRASPINAL ABSCESS [None]
  - BLOOD ALBUMIN DECREASED [None]
  - LYMPHOCYTE COUNT DECREASED [None]
  - MONOCYTE COUNT INCREASED [None]
  - FATIGUE [None]
  - WHITE BLOOD CELL COUNT DECREASED [None]
  - OEDEMA PERIPHERAL [None]
  - GLOBULINS DECREASED [None]
  - ASPARTATE AMINOTRANSFERASE INCREASED [None]
  - BLOOD CHOLESTEROL INCREASED [None]
  - LUMBAR SPINAL STENOSIS [None]
  - PARASPINAL ABSCESS [None]
  - SCOLIOSIS [None]
  - ALBUMIN GLOBULIN RATIO INCREASED [None]
  - CENTRAL NERVOUS SYSTEM LESION [None]
  - PLATELET COUNT INCREASED [None]
  - ALANINE AMINOTRANSFERASE INCREASED [None]
  - MUSCULAR WEAKNESS [None]
  - MONOPLEGIA [None]
  - INTERVERTEBRAL DISCITIS [None]
  - SKIN DISCOLOURATION [None]
  - ALOPECIA [None]
  - BLOOD UREA NITROGEN/CREATININE RATIO INCREASED [None]
  - ABASIA [None]
  - SPINAL OSTEOARTHRITIS [None]
  - BACK PAIN [None]
  - GAIT DISTURBANCE [None]
  - OSTEOMYELITIS [None]
  - LEFT VENTRICULAR HYPERTROPHY [None]
  - DIASTOLIC DYSFUNCTION [None]
  - BLOOD CALCIUM DECREASED [None]
  - BLOOD ALKALINE PHOSPHATASE INCREASED [None]
  - LOW DENSITY LIPOPROTEIN INCREASED [None]
